FAERS Safety Report 7391766-X (Version None)
Quarter: 2011Q2

REPORT INFORMATION
  Report Type: 
  Country: None (occurrence: None)
  Receive Date: 20110404
  Receipt Date: 20110323
  Transmission Date: 20111010
  Serious: Yes (Other)
  Sender: FDA-Public Use
  Company Number: US-AMGEN-USASP2011010695

PATIENT
  Age: 71 Year
  Sex: Female
  Weight: 80.272 kg

DRUGS (24)
  1. SIMVASTATIN [Concomitant]
     Dosage: 40 MG, QD
     Route: 048
  2. TOPIRAMATE [Concomitant]
     Dosage: 100 MG, QD
     Route: 048
  3. PLAVIX [Concomitant]
     Dosage: 75 MG, QD
     Route: 048
  4. ACETAMINOPHEN [Concomitant]
     Dosage: 650 MG, UNK
     Route: 048
  5. FERROUS SULFATE TAB [Concomitant]
     Dosage: 325 MG, QD
     Route: 048
  6. MI-ACID DOUBLE STRENGTH [Concomitant]
     Dosage: UNK
     Route: 048
  7. FLUOXETINE HYDROCHLORIDE [Concomitant]
     Dosage: 20 MG, QD
     Route: 048
  8. OXYBUTYNIN [Concomitant]
     Dosage: 10 MG, QD
     Route: 048
  9. PROLIA [Suspect]
     Indication: OSTEOPOROSIS POSTMENOPAUSAL
     Dosage: 60 MG, Q6MO
     Route: 058
     Dates: start: 20110204
  10. LANTUS [Concomitant]
     Dosage: 100 IU, QD
     Route: 058
  11. CALCIUM [Concomitant]
  12. GUIATUSS [Concomitant]
     Dosage: 100 MG, UNK
     Route: 048
  13. SPIRIVA [Concomitant]
     Dosage: 18 A?G, QD
     Route: 055
  14. RENVELA [Concomitant]
     Dosage: 800 MG, Q4H
     Route: 048
  15. PANTOPRAZOLE SODIUM [Concomitant]
     Dosage: 40 MG, QD
     Route: 048
  16. BISACODYL [Concomitant]
     Dosage: 10 MG, UNK
     Route: 050
  17. GLUCAGEN                           /00157801/ [Concomitant]
     Dosage: 1 MG, UNK
  18. ACETAMINOPHEN AND HYDROCODONE BITARTRATE [Concomitant]
     Dosage: UNK UNK, QWK
     Route: 048
  19. NEPHRO-VITE RX [Concomitant]
     Dosage: UNK UNK, QD
     Route: 048
  20. AMITRIPTYLINE [Concomitant]
     Dosage: 50 MG, QD
     Route: 048
  21. VITAMIN A [Concomitant]
  22. DOCUSATE SODIUM [Concomitant]
     Dosage: 100 MG, QD
     Route: 048
  23. ASPIRIN LOW [Concomitant]
     Dosage: 81 MG, QD
     Route: 048
  24. BENGAY [Concomitant]
     Dosage: UNK
     Route: 061

REACTIONS (2)
  - TETANY [None]
  - HYPOCALCAEMIA [None]
